FAERS Safety Report 4389208-1 (Version None)
Quarter: 2004Q2

REPORT INFORMATION
  Report Type: 
  Country: None (occurrence: None)
  Receive Date: 20040628
  Receipt Date: 20040617
  Transmission Date: 20050107
  Serious: No
  Sender: FDA-Public Use
  Company Number: J081-002-001650

PATIENT
  Age: 72 Year
  Sex: Male

DRUGS (4)
  1. ARICEPT [Suspect]
     Indication: DEMENTIA ALZHEIMER'S TYPE
     Dosage: 3 MG, 1 IN 1 D; ORAL (SEE IMAGE)
     Route: 048
     Dates: start: 20010523, end: 20010603
  2. ARICEPT [Suspect]
     Indication: DEMENTIA ALZHEIMER'S TYPE
     Dosage: 3 MG, 1 IN 1 D; ORAL (SEE IMAGE)
     Route: 048
     Dates: start: 20010604, end: 20040512
  3. HIRNAMIN (LEVOMEPROMAZINE) [Suspect]
     Indication: INSOMNIA
     Dosage: 5 MG; ORAL (SEE IMAGE)
     Route: 048
     Dates: start: 20031020, end: 20040512
  4. DIAZEPAM [Concomitant]

REACTIONS (6)
  - C-REACTIVE PROTEIN INCREASED [None]
  - DYSSTASIA [None]
  - GAIT DISTURBANCE [None]
  - INSOMNIA [None]
  - PYREXIA [None]
  - RHABDOMYOLYSIS [None]
